FAERS Safety Report 13898677 (Version 1)
Quarter: 2017Q3

REPORT INFORMATION
  Report Type: Spontaneous
  Country: US (occurrence: None)
  Receive Date: 20170817
  Receipt Date: 20170817
  Transmission Date: 20171127
  Serious: No
  Sender: FDA-Public Use
  Company Number: None

PATIENT
  Age: 27 Year
  Sex: Female

DRUGS (1)
  1. ZEPATIER [Suspect]
     Active Substance: ELBASVIR\GRAZOPREVIR

REACTIONS (5)
  - Nausea [None]
  - Nocturia [None]
  - Fatigue [None]
  - Dehydration [None]
  - Dysgeusia [None]

NARRATIVE: CASE EVENT DATE: 20170804
